FAERS Safety Report 7294692-X (Version None)
Quarter: 2011Q1

REPORT INFORMATION
  Report Type: 
  Country: None (occurrence: None)
  Receive Date: 20110216
  Receipt Date: 20110209
  Transmission Date: 20110831
  Serious: Yes (Other)
  Sender: FDA-Public Use
  Company Number: FR-PFIZER INC-2011028647

PATIENT
  Age: 54 Year
  Sex: Male

DRUGS (1)
  1. CHAMPIX [Suspect]
     Indication: SMOKING CESSATION THERAPY
     Dosage: UNK
     Route: 048
     Dates: start: 20110105, end: 20110119

REACTIONS (5)
  - TREMOR [None]
  - DEPRESSION [None]
  - CRYING [None]
  - TENSION [None]
  - SUICIDAL IDEATION [None]
